FAERS Safety Report 11655967 (Version 1)
Quarter: 2015Q4

REPORT INFORMATION
  Report Type: Spontaneous
  Country: CA (occurrence: CA)
  Receive Date: 20151023
  Receipt Date: 20151023
  Transmission Date: 20160304
  Serious: Yes (Hospitalization)
  Sender: FDA-Public Use
  Company Number: CA-TEVA-601917ACC

PATIENT
  Age: 60 Year
  Sex: Female
  Weight: 79.45 kg

DRUGS (3)
  1. CLONAZEPAM. [Concomitant]
     Active Substance: CLONAZEPAM
  2. BUPROPION. [Suspect]
     Active Substance: BUPROPION
     Indication: DEPRESSION
     Dosage: 300 MILLIGRAM DAILY;
     Route: 065
  3. PROZAC [Concomitant]
     Active Substance: FLUOXETINE HYDROCHLORIDE

REACTIONS (5)
  - Product substitution issue [Recovered/Resolved]
  - Panic attack [Recovered/Resolved]
  - Confusional state [Recovered/Resolved]
  - Anxiety [Recovered/Resolved]
  - Tachyphrenia [Recovered/Resolved]
